FAERS Safety Report 8131332 (Version 2)
Quarter: 2013Q1

REPORT INFORMATION
  Report Type: Spontaneous
  Country: US (occurrence: US)
  Receive Date: 20110912
  Receipt Date: 20130208
  Transmission Date: 20140127
  Serious: Yes (Hospitalization)
  Sender: FDA-Public Use
  Company Number: US-GLAXOSMITHKLINE-A0896987A

PATIENT
  Age: 57 Year
  Sex: Male
  Weight: 119.8 kg

DRUGS (11)
  1. AVANDIA [Suspect]
     Indication: TYPE 2 DIABETES MELLITUS
     Dosage: 8MG PER DAY
     Route: 048
     Dates: start: 20000815, end: 20070919
  2. AVAPRO [Concomitant]
  3. GLYCOSIDE [Concomitant]
  4. VYTORIN [Concomitant]
  5. MOBIC [Concomitant]
  6. VIAGRA [Concomitant]
  7. PLAVIX [Concomitant]
  8. GLUCOTROL XL [Concomitant]
  9. ZOCOR [Concomitant]
  10. GLIPIZIDE [Concomitant]
  11. ASPIRIN [Concomitant]

REACTIONS (3)
  - Cerebrovascular accident [Recovered/Resolved]
  - Myocardial infarction [Unknown]
  - Arteriosclerosis [Unknown]
